FAERS Safety Report 13768565 (Version 1)
Quarter: 2017Q3

REPORT INFORMATION
  Report Type: Spontaneous
  Country: US (occurrence: US)
  Receive Date: 20170719
  Receipt Date: 20170719
  Transmission Date: 20171127
  Serious: No
  Sender: FDA-Public Use
  Company Number: None

PATIENT
  Age: 66 Year
  Sex: Female
  Weight: 84.15 kg

DRUGS (1)
  1. XIIDRA [Suspect]
     Active Substance: LIFITEGRAST
     Indication: DRY EYE
     Dosage: ?          QUANTITY:60 VIALS;?
     Route: 047
     Dates: start: 20170706, end: 20170707

REACTIONS (7)
  - Lacrimation increased [None]
  - Sinus disorder [None]
  - Neck pain [None]
  - Rhinorrhoea [None]
  - Arthralgia [None]
  - Dysgeusia [None]
  - Headache [None]

NARRATIVE: CASE EVENT DATE: 20170706
